FAERS Safety Report 21959702 (Version 1)
Quarter: 2023Q1

REPORT INFORMATION
  Report Type: Spontaneous
  Country: AT (occurrence: AT)
  Receive Date: 20230206
  Receipt Date: 20230206
  Transmission Date: 20230418
  Serious: Yes (Other)
  Sender: FDA-Public Use
  Company Number: AT-ANIPHARMA-2023-AT-000005

PATIENT
  Sex: Female

DRUGS (4)
  1. ANASTROZOLE [Suspect]
     Active Substance: ANASTROZOLE
     Indication: Breast cancer metastatic
     Route: 065
     Dates: start: 201904, end: 201908
  2. KISQALI [Suspect]
     Active Substance: RIBOCICLIB
     Route: 065
     Dates: start: 201904, end: 201908
  3. EXEMESTANE [Suspect]
     Active Substance: EXEMESTANE
     Route: 065
     Dates: start: 202205
  4. ABEMACICLIB [Suspect]
     Active Substance: ABEMACICLIB
     Dosage: 150 MG, BID
     Route: 065
     Dates: start: 202205

REACTIONS (5)
  - Metastases to skin [Unknown]
  - Metastases to lymph nodes [Unknown]
  - Abdominal discomfort [Unknown]
  - Platelet count increased [Unknown]
  - Liver disorder [Recovering/Resolving]

NARRATIVE: CASE EVENT DATE: 20190801
